FAERS Safety Report 5634701-4 (Version None)
Quarter: 2008Q1

REPORT INFORMATION
  Report Type: 
  Country: None (occurrence: None)
  Receive Date: 20080131
  Receipt Date: 20071023
  Transmission Date: 20080703
  Serious: Yes (Other)
  Sender: FDA-Public Use
  Company Number: PHEH2007US14032

PATIENT
  Age: 48 Year
  Sex: Female
  Weight: 77.1 kg

DRUGS (1)
  1. TEKTURNA [Suspect]
     Indication: HYPERTENSION
     Dosage: 300 MG, QD, ORAL
     Route: 048
     Dates: start: 20071018, end: 20071023

REACTIONS (2)
  - PARAESTHESIA [None]
  - PERIORBITAL OEDEMA [None]
